FAERS Safety Report 6557341-1 (Version None)
Quarter: 2010Q1

REPORT INFORMATION
  Report Type: 
  Country: None (occurrence: None)
  Receive Date: 20100128
  Receipt Date: 20100128
  Transmission Date: 20100710
  Serious: Yes (Other)
  Sender: FDA-Public Use
  Company Number: None

PATIENT
  Age: 62 Year
  Sex: Female
  Weight: 86.1834 kg

DRUGS (1)
  1. ZICAMCOLD REMEDY ORAL MIST ZICAM ACETICUM 2X + GLUCONICUM ZICAM LLC, P [Suspect]
     Indication: OROPHARYNGEAL PAIN
     Dosage: 2 TO 3 SPRAYS 1 OR 2 TIMES A DAY PO
     Route: 048
     Dates: start: 20090127, end: 20100127

REACTIONS (2)
  - HYPOGEUSIA [None]
  - HYPOSMIA [None]
